FAERS Safety Report 8801702 (Version 1)
Quarter: 2012Q4

REPORT INFORMATION
  Report Type: Report from Study
  Country: LB (occurrence: LB)
  Receive Date: 20120921
  Receipt Date: 20120921
  Transmission Date: 20130627
  Serious: Yes (Death)
  Sender: FDA-Public Use
  Company Number: LB-SANOFI-AVENTIS-2012SA059351

PATIENT
  Age: 60 Year
  Sex: Female
  Weight: 81 kg

DRUGS (7)
  1. INSULIN GLARGINE [Suspect]
     Indication: TYPE II DIABETES MELLITUS
     Dates: start: 20120402, end: 20120717
  2. GLUCOPHAGE [Concomitant]
     Indication: DRUG USE FOR UNKNOWN INDICATION
  3. AMARYL [Concomitant]
     Indication: DRUG USE FOR UNKNOWN INDICATION
     Route: 065
  4. TRITACE [Concomitant]
     Indication: DRUG USE FOR UNKNOWN INDICATION
  5. AMLODIPINE [Concomitant]
     Indication: DRUG USE FOR UNKNOWN INDICATION
  6. EUTHYROX [Concomitant]
     Indication: DRUG USE FOR UNKNOWN INDICATION
  7. LANTUS SOLOSTAR [Concomitant]
     Indication: TYPE II DIABETES MELLITUS
     Route: 058
     Dates: start: 20120402, end: 20120717

REACTIONS (1)
  - Sudden death [Fatal]
